FAERS Safety Report 9333370 (Version 1)
Quarter: 2013Q2

REPORT INFORMATION
  Report Type: Spontaneous
  Country: US (occurrence: None)
  Receive Date: 20130604
  Receipt Date: 20130604
  Transmission Date: 20140414
  Serious: Yes (Other)
  Sender: FDA-Public Use
  Company Number: FK201301711

PATIENT
  Age: 82 Year
  Sex: Female

DRUGS (1)
  1. DOXYCYCLINE [Suspect]
     Indication: URINARY TRACT INFECTION

REACTIONS (3)
  - Gastrointestinal mucosal necrosis [None]
  - Capillary disorder [None]
  - Toxicity to various agents [None]
